FAERS Safety Report 24206232 (Version 3)
Quarter: 2024Q3

REPORT INFORMATION
  Report Type: Spontaneous
  Country: JP (occurrence: JP)
  Receive Date: 20240813
  Receipt Date: 20240912
  Transmission Date: 20241017
  Serious: Yes (Life-Threatening, Hospitalization)
  Sender: PERRIGO
  Company Number: JP-MLMSERVICE-20240729-PI145404-00029-1

PATIENT
  Age: 22 Year
  Sex: Female
  Weight: 49.1 kg

DRUGS (1)
  1. ACETAMINOPHEN [Suspect]
     Active Substance: ACETAMINOPHEN
     Indication: Suicide attempt
     Dosage: LARGE DOSE/ESTIMATED DOSE
     Route: 048
     Dates: start: 202312, end: 202312

REACTIONS (6)
  - Coagulopathy [Recovered/Resolved]
  - Intentional product misuse [Recovered/Resolved]
  - Overdose [Recovered/Resolved]
  - Acute hepatic failure [Recovered/Resolved]
  - Intentional overdose [Recovered/Resolved]
  - Suicide attempt [Recovered/Resolved]

NARRATIVE: CASE EVENT DATE: 20231201
